FAERS Safety Report 7631284-4 (Version None)
Quarter: 2011Q3

REPORT INFORMATION
  Report Type: 
  Country: None (occurrence: None)
  Receive Date: 20110725
  Receipt Date: 20110711
  Transmission Date: 20111222
  Serious: Yes (Other)
  Sender: FDA-Public Use
  Company Number: DE-US-EMD SERONO, INC.-7057905

PATIENT
  Sex: Female
  Weight: 55 kg

DRUGS (2)
  1. REBIF [Suspect]
     Dates: start: 20110509
  2. REBIF [Suspect]
     Indication: MULTIPLE SCLEROSIS
     Route: 058
     Dates: start: 20070901, end: 20110505

REACTIONS (6)
  - APHASIA [None]
  - ASTHENIA [None]
  - CHILLS [None]
  - DIPLEGIA [None]
  - SPEECH DISORDER [None]
  - MICTURITION URGENCY [None]
